FAERS Safety Report 6429612-0 (Version None)
Quarter: 2009Q4

REPORT INFORMATION
  Report Type: 
  Country: None (occurrence: None)
  Receive Date: 20091103
  Receipt Date: 20091019
  Transmission Date: 20100525
  Serious: Yes (Hospitalization)
  Sender: FDA-Public Use
  Company Number: 02100-JPN-06-0311

PATIENT
  Age: 62 Year
  Sex: Female
  Weight: 61 kg

DRUGS (17)
  1. PLETAL [Suspect]
     Indication: CEREBRAL INFARCTION
     Dosage: 81 MG, QD ORAL
     Route: 048
     Dates: start: 20050830, end: 20060702
  2. FLONASE [Concomitant]
  3. MUCODYNE (CARBOCISTEINE) [Concomitant]
  4. MUCOSTA (REBAMIPIDE) [Concomitant]
  5. KETOPROFEN [Concomitant]
  6. ATARAX [Concomitant]
  7. ONON (PRANLUKAST) [Concomitant]
  8. ALESION (EPINASTINE HYDROCHLORIDE) [Concomitant]
  9. DIACORT (DIFLORASONE DIACETATE) [Concomitant]
  10. UNIPHYL [Concomitant]
  11. HOKUNALIN: TAPE (TULOBUTEROL) [Concomitant]
  12. FLUTIDE DISKUS (FLUTICASONE PROPIONATE) [Concomitant]
  13. PROCATEROL HCL [Concomitant]
  14. LOXONIN (LOXOPROFEN SODIUM) [Concomitant]
  15. HIRUDOID (HEPARINOID) LOTION (EXCEPT LOTION FOR EYE) [Concomitant]
  16. EURAX [Concomitant]
  17. LIDOMEX (PREDNISOLONE VALEROACETATE) [Concomitant]

REACTIONS (1)
  - STATUS ASTHMATICUS [None]
